FAERS Safety Report 10046097 (Version 1)
Quarter: 2014Q1

REPORT INFORMATION
  Report Type: Spontaneous
  Country: FR (occurrence: FR)
  Receive Date: 20140331
  Receipt Date: 20140331
  Transmission Date: 20141002
  Serious: Yes (Other)
  Sender: FDA-Public Use
  Company Number: FR-BIOGENIDEC-2014BI027831

PATIENT
  Age: 46 Year
  Sex: Male

DRUGS (1)
  1. AVONEX [Suspect]
     Indication: MULTIPLE SCLEROSIS
     Route: 030
     Dates: start: 20130227

REACTIONS (5)
  - Autoimmune thyroiditis [Not Recovered/Not Resolved]
  - Myalgia [Recovered/Resolved]
  - Irritability [Unknown]
  - Muscle spasticity [Unknown]
  - Insomnia [Unknown]
